FAERS Safety Report 6824947-1 (Version None)
Quarter: 2010Q3

REPORT INFORMATION
  Report Type: 
  Country: None (occurrence: None)
  Receive Date: 20100708
  Receipt Date: 20070215
  Transmission Date: 20110219
  Serious: No
  Sender: FDA-Public Use
  Company Number: US-PFIZER INC-2006154364

PATIENT
  Sex: Male
  Weight: 74.84 kg

DRUGS (6)
  1. VARENICLINE [Suspect]
     Dates: start: 20061205
  2. COMBIVENT [Concomitant]
  3. SYNTHROID [Concomitant]
     Indication: THYROID DISORDER
  4. ADVIL LIQUI-GELS [Concomitant]
  5. RESTORIL [Concomitant]
  6. VITAMINS [Concomitant]

REACTIONS (4)
  - ABDOMINAL PAIN UPPER [None]
  - FLATULENCE [None]
  - GASTROINTESTINAL SOUNDS ABNORMAL [None]
  - NAUSEA [None]
